FAERS Safety Report 8988664 (Version 1)
Quarter: 2012Q4

REPORT INFORMATION
  Report Type: Report from Study
  Country: IT (occurrence: IT)
  Receive Date: 20121227
  Receipt Date: 20121227
  Transmission Date: 20130627
  Serious: Yes (Hospitalization, Disabling)
  Sender: FDA-Public Use
  Company Number: IT-BAYER-2012-133133

PATIENT
  Age: 78 Year
  Sex: Male
  Weight: 72 kg

DRUGS (2)
  1. SORAFENIB (RAF KINASE INHIBITOR) [Suspect]
     Indication: CARCINOMA HEPATOCELLULAR
     Dosage: 800 mg BID
     Route: 048
     Dates: start: 20120420, end: 20120923
  2. NAPRILENE [Concomitant]
     Indication: HYPERTENSION ARTERIAL
     Dosage: Daily dose 5 mg
     Route: 048
     Dates: start: 20120923

REACTIONS (1)
  - Cerebrovascular accident [Recovered/Resolved]
